FAERS Safety Report 11741121 (Version 1)
Quarter: 2015Q4

REPORT INFORMATION
  Report Type: Report from Study
  Country: BR (occurrence: BR)
  Receive Date: 20151116
  Receipt Date: 20151116
  Transmission Date: 20160304
  Serious: Yes (Other)
  Sender: FDA-Public Use
  Company Number: BR-ROCHE-1659027

PATIENT
  Sex: Female

DRUGS (5)
  1. SALBUTAMOL [Concomitant]
     Active Substance: ALBUTEROL
  2. GLIFAGE [Concomitant]
     Active Substance: METFORMIN HYDROCHLORIDE
     Route: 065
  3. XOLAIR [Suspect]
     Active Substance: OMALIZUMAB
     Dosage: 2 DF, QMO
     Route: 058
     Dates: start: 20120222
  4. SERETIDE [Concomitant]
     Active Substance: FLUTICASONE FUROATE\SALMETEROL XINAFOATE
  5. XOLAIR [Suspect]
     Active Substance: OMALIZUMAB
     Indication: ASTHMA
     Dosage: 2 DF, QMO
     Route: 058
     Dates: start: 20070101

REACTIONS (15)
  - Pruritus [Not Recovered/Not Resolved]
  - Feeling abnormal [Recovered/Resolved]
  - Swelling [Recovering/Resolving]
  - Neck pain [Recovering/Resolving]
  - Pain [Recovering/Resolving]
  - Anxiety [Not Recovered/Not Resolved]
  - Spinal disorder [Not Recovered/Not Resolved]
  - Diabetes mellitus [Recovering/Resolving]
  - Nervousness [Not Recovered/Not Resolved]
  - Weight increased [Not Recovered/Not Resolved]
  - Memory impairment [Not Recovered/Not Resolved]
  - Superficial vein prominence [Not Recovered/Not Resolved]
  - Hypertension [Recovering/Resolving]
  - Influenza [Recovered/Resolved]
  - Cholelithiasis [Not Recovered/Not Resolved]
